FAERS Safety Report 12249505 (Version 3)
Quarter: 2022Q3

REPORT INFORMATION
  Report Type: Report from Study
  Country: US (occurrence: US)
  Receive Date: 20160408
  Receipt Date: 20220802
  Transmission Date: 20221027
  Serious: Yes (Life-Threatening, Hospitalization, Other)
  Sender: FDA-Public Use
  Company Number: US-BRISTOL-MYERS SQUIBB COMPANY-BMS-2016-023745

PATIENT
  Age: 80 Year
  Sex: Male
  Weight: 84.55 kg

DRUGS (23)
  1. DASATINIB [Suspect]
     Active Substance: DASATINIB
     Indication: Pancreatic carcinoma
     Dosage: DAILY (DAY 1-14)
     Route: 048
     Dates: start: 20160222, end: 20160319
  2. FLUOROURACIL [Suspect]
     Active Substance: FLUOROURACIL
     Indication: Pancreatic carcinoma
     Dosage: , 5-FU INFUSION 2400MG/M2
     Route: 042
     Dates: start: 20160222, end: 20160606
  3. LEUCOVORIN CALCIUM [Suspect]
     Active Substance: LEUCOVORIN CALCIUM
     Indication: Pancreatic carcinoma
     Route: 042
     Dates: start: 20160222, end: 20160606
  4. OXALIPLATIN [Suspect]
     Active Substance: OXALIPLATIN
     Indication: Pancreatic carcinoma
     Route: 042
     Dates: start: 20160222, end: 20160606
  5. ALUMINUM HYDROXIDE\DIMETHICONE\MAGNESIUM HYDROXIDE [Concomitant]
     Active Substance: ALUMINUM HYDROXIDE\DIMETHICONE\MAGNESIUM HYDROXIDE
     Indication: Product used for unknown indication
     Dosage: 200-200-20 MG/5ML SUSP 40 ML
     Dates: start: 20160328
  6. LIDOCAINE [Concomitant]
     Active Substance: LIDOCAINE
     Indication: Product used for unknown indication
     Dosage: 2 % SOLN 40 ML
     Dates: start: 20160328
  7. NYSTATIN [Concomitant]
     Active Substance: NYSTATIN
     Indication: Product used for unknown indication
     Dosage: NYSTATIN 100000 UNIT/ML SUSP 4,000,000 UNITS SUSPENSION SWISH AND SPIT 5 MLS EVERY 2 HOURS PRN;
     Dates: start: 20160328
  8. DEXAMETHASONE [Concomitant]
     Active Substance: DEXAMETHASONE
     Indication: Product used for unknown indication
     Dosage: 4MG 2 TABLETS ON DAY 2 AND DAY 3 OF EACH CHEMOTHERAPY CYCLE
     Dates: start: 20160328
  9. FISH OIL [Concomitant]
     Active Substance: FISH OIL
     Indication: Product used for unknown indication
     Dosage: FISH OIL 1000MG
     Dates: start: 20160328
  10. GLUCOSAMINE [GLUCOSAMINE HYDROCHLORIDE] [Concomitant]
     Indication: Product used for unknown indication
     Dosage: GLUCOSAMINE 1500 COMPLEX PO
     Route: 048
     Dates: start: 20160328
  11. COMPOUND LIDOCAINE [Concomitant]
     Indication: Product used for unknown indication
     Dosage: LIDOCAINE-PRILOCAINE 2.5-2.5 % CREA PRN
     Dates: start: 20160328
  12. LOPERAMIDE [Concomitant]
     Active Substance: LOPERAMIDE
     Indication: Product used for unknown indication
     Dosage: LOPERAMIDE 2 MG TABS PRN
     Dates: start: 20160328
  13. METOPROLOL TARTRATE [Concomitant]
     Active Substance: METOPROLOL TARTRATE
     Indication: Product used for unknown indication
     Dosage: METOPROLOL TARTRATE 12.5 MG TABS
     Dates: start: 20160328
  14. ONDANSETRON [Concomitant]
     Active Substance: ONDANSETRON
     Indication: Product used for unknown indication
     Dosage: ONDANSETRON 8 MG EVERY 4 HOURS PRN
     Dates: start: 20160328
  15. OXYCODONE [Concomitant]
     Active Substance: OXYCODONE
     Indication: Product used for unknown indication
     Dosage: 5 MG TABS EVERY 4 HOURS PRN
     Dates: start: 20160328
  16. PAROXETINE [Concomitant]
     Active Substance: PAROXETINE
     Indication: Product used for unknown indication
     Dosage: 20 MG 1X DAILY
     Dates: start: 20160328
  17. ROSUVASTATIN [Concomitant]
     Active Substance: ROSUVASTATIN
     Indication: Product used for unknown indication
     Dosage: 10 MG;
     Dates: start: 20160328
  18. CHOLECALCIFEROL [Concomitant]
     Active Substance: CHOLECALCIFEROL
     Indication: Product used for unknown indication
     Dosage: 2000 UNITS
     Dates: start: 20160328
  19. ZOLPIDEM [Concomitant]
     Active Substance: ZOLPIDEM TARTRATE
     Indication: Product used for unknown indication
     Dosage: 5 MG TABS
     Dates: start: 20160328
  20. COENZYME Q10 [Concomitant]
     Active Substance: DIETARY SUPPLEMENT\UBIDECARENONE
     Indication: Product used for unknown indication
     Dosage: Q10 100MG
     Dates: start: 20160328
  21. ASPIRIN [Concomitant]
     Active Substance: ASPIRIN
     Indication: Product used for unknown indication
     Dosage: 81 MG TBEC
     Dates: start: 20160328
  22. MINERALS\VITAMINS [Concomitant]
     Active Substance: MINERALS\VITAMINS
     Indication: Product used for unknown indication
     Dosage: SILVER ADULT 50+ PO
     Route: 048
     Dates: start: 20160328
  23. CLOPIDOGREL [Concomitant]
     Active Substance: CLOPIDOGREL BISULFATE
     Indication: Product used for unknown indication
     Dosage: 75MG;
     Dates: start: 20160328

REACTIONS (4)
  - Atrial fibrillation [Recovering/Resolving]
  - Syncope [Unknown]
  - Fall [Unknown]
  - Coronary artery disease [Unknown]

NARRATIVE: CASE EVENT DATE: 20160320
